FAERS Safety Report 18021922 (Version 2)
Quarter: 2020Q3

REPORT INFORMATION
  Report Type: Report from Study
  Country: US (occurrence: US)
  Receive Date: 20200714
  Receipt Date: 20200731
  Transmission Date: 20201103
  Serious: Yes (Death)
  Sender: FDA-Public Use
  Company Number: US-EXELIXIS-XL18420031145

PATIENT
  Age: 54 Year
  Sex: Male
  Weight: 73.3 kg

DRUGS (3)
  1. XL184 [Suspect]
     Active Substance: CABOZANTINIB
     Indication: PENILE CANCER
     Dosage: 40 MG, QD
     Route: 048
     Dates: start: 20200225
  2. NIVOLUMAB [Suspect]
     Active Substance: NIVOLUMAB
     Indication: PENILE CANCER
     Dosage: 3 MG/KG (220 MG) ON DAY 1
     Route: 042
     Dates: start: 20200225, end: 20200225
  3. IPILIMUMAB [Suspect]
     Active Substance: IPILIMUMAB
     Indication: PENILE CANCER
     Dosage: 1 MG/KG (73.3 MG) ON DAY 1
     Route: 042
     Dates: start: 20200225, end: 20200225

REACTIONS (1)
  - Death [Fatal]

NARRATIVE: CASE EVENT DATE: 20200313
